FAERS Safety Report 20849747 (Version 2)
Quarter: 2022Q4

REPORT INFORMATION
  Report Type: Spontaneous
  Country: FR (occurrence: FR)
  Receive Date: 20220519
  Receipt Date: 20221213
  Transmission Date: 20230113
  Serious: Yes (Other)
  Sender: FDA-Public Use
  Company Number: FR-GLAXOSMITHKLINE-FR2022EME078169

PATIENT

DRUGS (11)
  1. BELANTAMAB MAFODOTIN [Suspect]
     Active Substance: BELANTAMAB MAFODOTIN
     Indication: Plasma cell myeloma
     Dosage: 2.5 MG/KG, Z( EVERY 3 WEEKS, LINE 9)
     Route: 042
     Dates: start: 20210125, end: 20210720
  2. VALGANCICLOVIR HYDROCHLORIDE [Concomitant]
     Active Substance: VALGANCICLOVIR HYDROCHLORIDE
     Indication: Retinitis viral
     Dosage: UNK
  3. DEXAMETHASONE [Concomitant]
     Active Substance: DEXAMETHASONE
     Indication: Product used for unknown indication
     Dosage: LINE 8 RESPONSE WAS NOT AVAILABLE
     Dates: start: 202010
  4. THALIDOMIDE [Concomitant]
     Active Substance: THALIDOMIDE
     Indication: Product used for unknown indication
     Dosage: LINE 2, VERY GOOD PARTIAL RESPONSE (GREATER THAN EQUAL TO VGPR))
     Dates: start: 201605
  5. VELCADE [Concomitant]
     Active Substance: BORTEZOMIB
     Indication: Product used for unknown indication
     Dosage: LINE 2 VERY GOOD PARTIAL RESPONSE (GREATER THAN EQUAL TO VGPR))
     Dates: start: 201605
  6. POMALIDOMIDE [Concomitant]
     Active Substance: POMALIDOMIDE
     Indication: Product used for unknown indication
     Dosage: LINE 4,  RESPONSE WAS NOT AVAILABLE
     Dates: start: 201809
  7. DARZALEX [Concomitant]
     Active Substance: DARATUMUMAB
     Indication: Product used for unknown indication
     Dosage: LINE 4,  RESPONSE WAS NOT AVAILABLE
     Dates: start: 201809
  8. KYPROLIS [Concomitant]
     Active Substance: CARFILZOMIB
     Indication: Product used for unknown indication
     Dosage: LINE 5, STABLE DISEASE (SD)
     Dates: start: 201907
  9. IBERDOMIDE [Concomitant]
     Active Substance: IBERDOMIDE
     Indication: Product used for unknown indication
     Dosage: LINE 7, RESPONSE WAS NOT AVAILABLE
     Dates: start: 202005
  10. VINCRISTINE [Concomitant]
     Active Substance: VINCRISTINE
     Indication: Product used for unknown indication
     Dosage: LINE 8, RESPONSE WAS NOT AVAILABLE
     Dates: start: 202010
  11. DOXORUBICIN [Concomitant]
     Active Substance: DOXORUBICIN
     Indication: Product used for unknown indication
     Dosage: LINE 8, RESPONSE WAS NOT AVAILABLE
     Dates: start: 202010

REACTIONS (9)
  - Thrombocytopenia [Recovered/Resolved]
  - Neuropathy peripheral [Unknown]
  - Nausea [Recovered/Resolved]
  - Fatigue [Unknown]
  - Asthenia [Unknown]
  - Eye disorder [Unknown]
  - Lymphadenopathy [Unknown]
  - Skin lesion [Unknown]
  - Skin toxicity [Recovering/Resolving]

NARRATIVE: CASE EVENT DATE: 20210205
